FAERS Safety Report 19505590 (Version 2)
Quarter: 2022Q2

REPORT INFORMATION
  Report Type: Spontaneous
  Country: US (occurrence: US)
  Receive Date: 20210708
  Receipt Date: 20220618
  Transmission Date: 20220721
  Serious: No
  Sender: FDA-Public Use
  Company Number: US-AMGEN-USASP2021104295

PATIENT
  Age: 52 Year
  Sex: Male

DRUGS (2)
  1. CORLANOR [Suspect]
     Active Substance: IVABRADINE HYDROCHLORIDE
     Indication: Cardiac failure
     Dosage: 5 MILLIGRAM, BID
     Route: 048
  2. CORLANOR [Suspect]
     Active Substance: IVABRADINE HYDROCHLORIDE
     Indication: Cardiac failure

REACTIONS (4)
  - Malaise [Recovered/Resolved]
  - Chest pain [Unknown]
  - Dizziness [Unknown]
  - Chest discomfort [Unknown]

NARRATIVE: CASE EVENT DATE: 20210101
